FAERS Safety Report 19371600 (Version 1)
Quarter: 2021Q2

REPORT INFORMATION
  Report Type: Spontaneous
  Country: IN (occurrence: IN)
  Receive Date: 20210603
  Receipt Date: 20210603
  Transmission Date: 20210717
  Serious: Yes (Life-Threatening)
  Sender: FDA-Public Use
  Company Number: IN-BAUSCH-BL-2021-019492

PATIENT
  Age: 27 Year
  Sex: Male

DRUGS (6)
  1. ATROPINE. [Suspect]
     Active Substance: ATROPINE
     Dosage: DOSE WAS DOUBLED AS PER INSTITUTIONAL PROTOCOL (EVERY 3 TO 5 MIN)
     Route: 042
  2. ATROPINE. [Suspect]
     Active Substance: ATROPINE
     Dosage: 10?20 PERCENT OF THE BOLUS GIVEN
     Route: 040
  3. PRALIDOXIME [Concomitant]
     Active Substance: PRALIDOXIME
     Indication: CHEMICAL POISONING
     Dosage: LOADING DOSE
  4. ATROPINE. [Suspect]
     Active Substance: ATROPINE
     Indication: CHEMICAL POISONING
     Dosage: 1?3 MG
     Route: 042
  5. ATROPINE. [Suspect]
     Active Substance: ATROPINE
     Dosage: LOWER DOSES (RATE WAS DECREASED BY 20% OF THE ONGOING RATE)
     Route: 042
  6. ATROPINE. [Suspect]
     Active Substance: ATROPINE
     Dosage: SUBSEQUENTLY TAPERED AND STOPPED
     Route: 042

REACTIONS (1)
  - Obstructive airways disorder [Recovered/Resolved]
